FAERS Safety Report 20769723 (Version 1)
Quarter: 2022Q2

REPORT INFORMATION
  Report Type: Report from Study
  Country: CA (occurrence: CA)
  Receive Date: 20220429
  Receipt Date: 20220429
  Transmission Date: 20220721
  Serious: Yes (Hospitalization, Other)
  Sender: FDA-Public Use
  Company Number: CA-JNJFOC-20211003543

PATIENT
  Age: 40 Year
  Sex: Female

DRUGS (1)
  1. REMICADE [Suspect]
     Active Substance: INFLIXIMAB
     Indication: Crohn^s disease
     Dosage: EXPIRY DATE: 01-JUL-2024?RECEIVED INFUSION ON 30/MAR/2010
     Route: 042
     Dates: start: 20050105

REACTIONS (9)
  - Biliary tract infection [Recovering/Resolving]
  - Hepatic infection [Unknown]
  - Biliary obstruction [Recovering/Resolving]
  - Cholangitis sclerosing [Unknown]
  - Cholelithiasis [Unknown]
  - Gastrointestinal neoplasm [Unknown]
  - Skin lesion [Not Recovered/Not Resolved]
  - Arthralgia [Not Recovered/Not Resolved]
  - Frequent bowel movements [Not Recovered/Not Resolved]

NARRATIVE: CASE EVENT DATE: 20210923
